FAERS Safety Report 5808602-2 (Version None)
Quarter: 2008Q3

REPORT INFORMATION
  Report Type: 
  Country: None (occurrence: None)
  Receive Date: 20080714
  Receipt Date: 20080702
  Transmission Date: 20090109
  Serious: Yes (Hospitalization)
  Sender: FDA-Public Use
  Company Number: GB-AMGEN-UK290398

PATIENT
  Sex: Male
  Weight: 68 kg

DRUGS (2)
  1. PANITUMUMAB [Suspect]
     Indication: COLORECTAL CANCER
     Route: 042
     Dates: start: 20070608
  2. IRINOTECAN [Concomitant]
     Route: 042
     Dates: start: 20070608

REACTIONS (1)
  - LOWER RESPIRATORY TRACT INFECTION [None]
